FAERS Safety Report 6597827-7 (Version None)
Quarter: 2010Q1

REPORT INFORMATION
  Report Type: 
  Country: None (occurrence: None)
  Receive Date: 20100216
  Receipt Date: 20100203
  Transmission Date: 20100710
  Serious: Yes (Congenital Anomaly)
  Sender: FDA-Public Use
  Company Number: 2010AL000832

PATIENT

DRUGS (2)
  1. DICLOFENAC SODIUM EXTENDED-RELEASE TABLETS, 100 MG (PREPAC) (DICLOFENA [Suspect]
     Indication: DRUG EXPOSURE DURING PREGNANCY
     Dosage: TRPL
     Route: 064
     Dates: start: 20040604, end: 20040618
  2. NITROFURANTOIN [Concomitant]

REACTIONS (3)
  - CONGENITAL HAND MALFORMATION [None]
  - LIMB REDUCTION DEFECT [None]
  - MATERNAL DRUGS AFFECTING FOETUS [None]
